FAERS Safety Report 7615735-7 (Version None)
Quarter: 2011Q3

REPORT INFORMATION
  Report Type: 
  Country: None (occurrence: None)
  Receive Date: 20110711
  Receipt Date: 20110630
  Transmission Date: 20111222
  Serious: Yes (Hospitalization, Other)
  Sender: FDA-Public Use
  Company Number: 968983

PATIENT
  Age: 12 Year
  Sex: Male
  Weight: 37.4 kg

DRUGS (6)
  1. METHOTREXATE [Suspect]
     Indication: MEDULLOBLASTOMA
     Dosage: 9600 MG,
     Dates: start: 20110405, end: 20110405
  2. OMEPRAZOLE [Concomitant]
  3. METOCLOPRAMIDE [Concomitant]
  4. ONDANSETRON [Concomitant]
  5. DEXAMETHASONE [Concomitant]
  6. VINCRISTINE [Concomitant]

REACTIONS (4)
  - CONFUSIONAL STATE [None]
  - ENCEPHALOPATHY [None]
  - CONVULSION [None]
  - URINARY INCONTINENCE [None]
